FAERS Safety Report 19546639 (Version 1)
Quarter: 2021Q3

REPORT INFORMATION
  Report Type: Spontaneous
  Country: FR (occurrence: FR)
  Receive Date: 20210715
  Receipt Date: 20210715
  Transmission Date: 20211014
  Serious: Yes (Other)
  Sender: FDA-Public Use
  Company Number: FR-AUROBINDO-AUR-APL-2021-029398

PATIENT
  Sex: Female

DRUGS (3)
  1. BISOPROLOL [Suspect]
     Active Substance: BISOPROLOL
     Indication: PALPITATIONS
     Dosage: UNK UNK, ONCE A DAY(37.5 (UNSPECIFIED UNITS)
     Route: 065
  2. LYSANXIA [Concomitant]
     Active Substance: PRAZEPAM
     Indication: ANXIETY
     Dosage: 0.5 DOSAGE FORM, TWO TIMES A DAY
     Route: 065
  3. EUTHYROX [Suspect]
     Active Substance: LEVOTHYROXINE SODIUM
     Indication: POST PROCEDURAL HYPOTHYROIDISM
     Dosage: UNK(75 ON SUNDAY MONDAY AND TUESDAY AND 87.5 ON WEDNESDAY THURSDAY FRIDAY AND SATURDAY)
     Route: 065

REACTIONS (6)
  - Hyperthyroidism [Unknown]
  - Dry eye [Unknown]
  - Anxiety [Unknown]
  - Fatigue [Unknown]
  - Nervousness [Unknown]
  - Somnolence [Unknown]
